FAERS Safety Report 6681228-7 (Version None)
Quarter: 2010Q2

REPORT INFORMATION
  Report Type: 
  Country: None (occurrence: None)
  Receive Date: 20100414
  Receipt Date: 20100113
  Transmission Date: 20101027
  Serious: No
  Sender: FDA-Public Use
  Company Number: US-KINGPHARMUSA00001-K201000043

PATIENT
  Sex: Female

DRUGS (5)
  1. SKELAXIN [Suspect]
     Indication: MUSCLE SPASMS
     Dosage: 800 MG, TID PRN
     Route: 048
     Dates: start: 20091205, end: 20091207
  2. BUSPAR [Concomitant]
     Dosage: UNK, QD
  3. XANAX [Concomitant]
     Dosage: UNK, PRN
  4. BYSTOLIC [Concomitant]
     Dosage: 10 MG, UNK
  5. ZOCOR [Concomitant]

REACTIONS (3)
  - HYPERSENSITIVITY [None]
  - IRRITABILITY [None]
  - RASH [None]
